FAERS Safety Report 5525880-8 (Version None)
Quarter: 2007Q4

REPORT INFORMATION
  Report Type: 
  Country: None (occurrence: None)
  Receive Date: 20071126
  Receipt Date: 20071114
  Transmission Date: 20080405
  Serious: Yes (Hospitalization)
  Sender: FDA-Public Use
  Company Number: US-ASTRAZENECA-2007UW17198

PATIENT
  Age: 39 Year
  Sex: Female
  Weight: 86.6 kg

DRUGS (2)
  1. SEROQUEL [Suspect]
     Indication: GENERALISED ANXIETY DISORDER
     Route: 048
     Dates: start: 20070619, end: 20070715
  2. TYLENOL [Concomitant]
     Indication: HEADACHE
     Route: 048

REACTIONS (1)
  - SYNCOPE [None]
